FAERS Safety Report 5853776-0 (Version None)
Quarter: 2008Q3

REPORT INFORMATION
  Report Type: 
  Country: None (occurrence: None)
  Receive Date: 20080822
  Receipt Date: 20080819
  Transmission Date: 20090109
  Serious: Yes (Death)
  Sender: FDA-Public Use
  Company Number: DE-AVENTIS-200812123DE

PATIENT
  Age: 68 Year
  Sex: Male

DRUGS (5)
  1. ARAVA [Suspect]
     Indication: RHEUMATOID ARTHRITIS
     Dosage: DOSE: NOT REPORTED
     Route: 048
     Dates: start: 20050701, end: 20070601
  2. HYDROXYCHLOROQUINE [Concomitant]
     Indication: RHEUMATOID ARTHRITIS
     Dosage: DOSE: NOT REPORTED
     Dates: start: 20060701, end: 20070601
  3. ANALGESICS [Concomitant]
     Dosage: DOSE: NOT REPORTED
     Dates: start: 20050714, end: 20070601
  4. ANTIINFLAMMATORY/ANTIRHEUMATIC NON-STEROIDS [Concomitant]
     Dosage: DOSE: NOT REPORTED
     Dates: start: 20050714, end: 20070601
  5. GLUCOCORTICOIDS [Concomitant]
     Dosage: DOSE: 5 TO 7.5
     Dates: start: 20050714, end: 20070601

REACTIONS (3)
  - ABDOMINAL PAIN UPPER [None]
  - METASTASES TO LIVER [None]
  - PANCREATIC CARCINOMA [None]
